FAERS Safety Report 11655642 (Version 1)
Quarter: 2015Q4

REPORT INFORMATION
  Report Type: Spontaneous
  Country: US (occurrence: US)
  Receive Date: 20151023
  Receipt Date: 20151023
  Transmission Date: 20160304
  Serious: No
  Sender: FDA-Public Use
  Company Number: US-ASTELLAS-2015US021654

PATIENT
  Age: 71 Year
  Sex: Female

DRUGS (1)
  1. MYCAMINE [Suspect]
     Active Substance: MICAFUNGIN SODIUM
     Indication: CANDIDA INFECTION
     Dosage: UNK UNK, UNKNOWN FREQ.
     Route: 042
     Dates: start: 20150619, end: 20150702

REACTIONS (6)
  - Feeling abnormal [Unknown]
  - Product quality issue [Unknown]
  - Urticaria [Unknown]
  - Pain [Unknown]
  - Drug ineffective [Unknown]
  - Incorrect product storage [Unknown]
